FAERS Safety Report 7746179-5 (Version None)
Quarter: 2011Q3

REPORT INFORMATION
  Report Type: 
  Country: None (occurrence: None)
  Receive Date: 20110913
  Receipt Date: 20110908
  Transmission Date: 20111222
  Serious: Yes (Hospitalization)
  Sender: FDA-Public Use
  Company Number: JP-ROCHE-779717

PATIENT
  Sex: Female

DRUGS (24)
  1. PREDNISOLONE [Suspect]
     Route: 048
     Dates: start: 20101227, end: 20110130
  2. PREDNISOLONE [Suspect]
     Route: 048
     Dates: start: 20110412, end: 20110419
  3. PREDNISOLONE [Suspect]
     Route: 048
     Dates: start: 20110621
  4. CYCLOSPORINE [Suspect]
     Route: 048
     Dates: start: 20110406, end: 20110421
  5. CYCLOSPORINE [Suspect]
     Route: 048
     Dates: start: 20110422, end: 20110605
  6. GLORIAMIN [Concomitant]
     Route: 048
     Dates: start: 20110621
  7. TOCILIZUMAB [Suspect]
     Indication: JUVENILE ARTHRITIS
     Route: 041
     Dates: start: 20110318, end: 20110318
  8. PREDNISOLONE [Suspect]
     Indication: JUVENILE ARTHRITIS
     Dosage: FORM:PERORAL AGENT
     Route: 048
     Dates: end: 20101205
  9. PREDNISOLONE [Suspect]
     Route: 048
     Dates: start: 20110131, end: 20110214
  10. NAPROXEN [Suspect]
     Route: 048
     Dates: start: 20110621
  11. CYTOTEC [Concomitant]
     Route: 048
     Dates: start: 20110621
  12. PREDNISOLONE [Suspect]
     Route: 048
     Dates: start: 20101206, end: 20101226
  13. PREDNISOLONE [Suspect]
     Route: 048
     Dates: start: 20110215, end: 20110227
  14. PREDNISOLONE [Suspect]
     Route: 048
     Dates: start: 20110307, end: 20110321
  15. TOCILIZUMAB [Suspect]
     Route: 041
     Dates: start: 20110510, end: 20110606
  16. CYCLOSPORINE [Suspect]
     Route: 048
     Dates: start: 20110325, end: 20110405
  17. NAPROXEN [Suspect]
     Indication: JUVENILE ARTHRITIS
     Route: 048
     Dates: start: 20110605
  18. PREDNISOLONE [Suspect]
     Route: 048
     Dates: start: 20110228, end: 20110306
  19. PREDNISOLONE [Suspect]
     Route: 048
     Dates: start: 20110427, end: 20110509
  20. PREDNISOLONE [Suspect]
     Route: 048
     Dates: start: 20110510, end: 20110605
  21. PREDNISOLONE [Suspect]
     Route: 048
     Dates: start: 20110420, end: 20110426
  22. PREDNISOLONE SODIUM SUCCINATE INJ [Suspect]
     Indication: JUVENILE ARTHRITIS
     Route: 042
     Dates: start: 20110606, end: 20110620
  23. CYCLOSPORINE [Suspect]
     Route: 048
     Dates: start: 20110621
  24. DEXAMETHASONE [Suspect]
     Dosage: DOSE AND FREQUENCY:UNKNOWN,DOSAGE:UNCERTAIN
     Route: 042

REACTIONS (2)
  - HISTIOCYTOSIS HAEMATOPHAGIC [None]
  - INFECTIOUS PERITONITIS [None]
